FAERS Safety Report 15551541 (Version 2)
Quarter: 2019Q4

REPORT INFORMATION
  Report Type: Spontaneous
  Country: US (occurrence: US)
  Receive Date: 20181025
  Receipt Date: 20191015
  Transmission Date: 20200122
  Serious: Yes (Death, Hospitalization, Other)
  Sender: FDA-Public Use
  Company Number: US-009507513-1810USA010291

PATIENT
  Age: 56 Year

DRUGS (1)
  1. ZERBAXA [Suspect]
     Active Substance: CEFTOLOZANE SULFATE\TAZOBACTAM SODIUM
     Indication: OSTEOMYELITIS BACTERIAL
     Dosage: 1.5 GRAM, Q8H; GIVEN AS INITIAL DOSE OVER 1 HOUR FOLLOWED BY 4 HOUR INFUSIONS FOR SUBSEQUENT DOSAGES

REACTIONS (3)
  - Death [Fatal]
  - Adverse event [Unknown]
  - Off label use [Unknown]
